FAERS Safety Report 4959303-4 (Version None)
Quarter: 2006Q1

REPORT INFORMATION
  Report Type: 
  Country: None (occurrence: None)
  Receive Date: 20060331
  Receipt Date: 20060320
  Transmission Date: 20060701
  Serious: Yes (Hospitalization, Other)
  Sender: FDA-Public Use
  Company Number: DE-JNJFOC-20060305493

PATIENT
  Age: 68 Year
  Sex: Female
  Weight: 55.6 kg

DRUGS (18)
  1. HALDOL [Interacting]
     Route: 048
  2. HALDOL [Interacting]
     Route: 048
  3. HALDOL [Interacting]
     Route: 048
  4. HALDOL [Interacting]
     Route: 048
  5. HALDOL [Interacting]
     Indication: DRUG USE FOR UNKNOWN INDICATION
     Route: 048
  6. MIRTAZAPINE [Suspect]
     Route: 048
  7. MIRTAZAPINE [Suspect]
     Indication: DRUG USE FOR UNKNOWN INDICATION
     Route: 048
  8. LEVOMEPROMAZIN [Suspect]
     Route: 048
  9. LEVOMEPROMAZIN [Suspect]
     Route: 048
  10. LEVOMEPROMAZIN [Suspect]
     Route: 048
  11. LEVOMEPROMAZIN [Suspect]
     Route: 048
  12. LEVOMEPROMAZIN [Suspect]
     Route: 048
  13. LEVOMEPROMAZIN [Suspect]
     Indication: DRUG USE FOR UNKNOWN INDICATION
     Route: 048
  14. SOLIAN [Concomitant]
     Route: 048
  15. SOLIAN [Concomitant]
     Route: 048
  16. SOLIAN [Concomitant]
     Route: 048
  17. AKINETON [Concomitant]
     Route: 048
  18. DETMS [Concomitant]
     Dosage: 1 KPS= DOSE

REACTIONS (5)
  - CARDIAC FAILURE [None]
  - DRUG INTERACTION [None]
  - HEPATIC ENZYME INCREASED [None]
  - LEUKOPENIA [None]
  - THROMBOCYTOPENIA [None]
